FAERS Safety Report 16249595 (Version 1)
Quarter: 2019Q2

REPORT INFORMATION
  Report Type: Spontaneous
  Country: FR (occurrence: FR)
  Receive Date: 20190429
  Receipt Date: 20190429
  Transmission Date: 20190711
  Serious: Yes (Death)
  Sender: FDA-Public Use
  Company Number: FR-BAYER-2019-079738

PATIENT
  Age: 83 Year
  Sex: Male
  Weight: 78.9 kg

DRUGS (9)
  1. ELIQUIS [Suspect]
     Active Substance: APIXABAN
     Indication: MYOCARDIAL ISCHAEMIA
     Dosage: 2 DF, QD
     Route: 048
     Dates: start: 201901
  2. DOLIPRANE [Suspect]
     Active Substance: ACETAMINOPHEN
     Indication: PAIN
     Dosage: 6 DF, QD
     Route: 048
     Dates: start: 201901
  3. CORDARONE [Suspect]
     Active Substance: AMIODARONE HYDROCHLORIDE
     Indication: MYOCARDIAL ISCHAEMIA
     Dosage: 1 DF, QD
     Route: 048
     Dates: start: 201901
  4. ATORVASTATIN [Suspect]
     Active Substance: ATORVASTATIN
     Indication: MYOCARDIAL ISCHAEMIA
     Dosage: 2 DF, QD
     Route: 048
     Dates: start: 201901
  5. BISOCE [Suspect]
     Active Substance: BISOPROLOL
     Indication: HYPERTENSION
     Dosage: 3 DF, QD
     Route: 048
     Dates: start: 201901
  6. PANTOPRAZOLE [Suspect]
     Active Substance: PANTOPRAZOLE
     Indication: ULCER HAEMORRHAGE
     Dosage: 1 DF, QD
     Route: 048
     Dates: start: 201901
  7. KARDEGIC [Suspect]
     Active Substance: ASPIRIN DL-LYSINE
     Indication: MYOCARDIAL ISCHAEMIA
     Dosage: 1 DF, QD
     Route: 048
     Dates: start: 201901
  8. ZAMUDOL [Suspect]
     Active Substance: TRAMADOL HYDROCHLORIDE
     Indication: PAIN
     Dosage: 2 DF, QD
     Route: 048
     Dates: start: 201901
  9. CIPROFLOXACIN. [Suspect]
     Active Substance: CIPROFLOXACIN
     Indication: INFECTION
     Dosage: UNK
     Route: 048

REACTIONS (4)
  - Rectal haemorrhage [Fatal]
  - Shock haemorrhagic [Fatal]
  - Gastric ulcer perforation [Fatal]
  - Gastric haemorrhage [Fatal]

NARRATIVE: CASE EVENT DATE: 201902
